FAERS Safety Report 9849539 (Version 1)
Quarter: 2014Q1

REPORT INFORMATION
  Report Type: Spontaneous
  Country: US (occurrence: None)
  Receive Date: 20140124
  Receipt Date: 20140124
  Transmission Date: 20141002
  Serious: Yes (Disabling)
  Sender: FDA-Public Use
  Company Number: None

PATIENT
  Age: 58 Year
  Sex: Female
  Weight: 72.58 kg

DRUGS (13)
  1. MYRBETRIQ [Suspect]
     Indication: URINARY INCONTINENCE
     Route: 048
     Dates: start: 20130831, end: 20131128
  2. ESTRADIOL [Concomitant]
  3. KETOPROFEN [Concomitant]
  4. PROMETHAZINE [Concomitant]
  5. ESTRACE CREAM [Concomitant]
  6. VAGIFEN [Concomitant]
  7. TESTOSTERONE CREAM [Concomitant]
  8. CO Q-10 [Concomitant]
  9. B-2 [Concomitant]
  10. ALPHA LIPOIC ACID [Concomitant]
  11. CHELATED MAGNESIUM FOR MIGRAINE [Concomitant]
  12. CALTRATE [Concomitant]
  13. LOW DOSE ASPIRIN [Concomitant]

REACTIONS (9)
  - Arthralgia [None]
  - Back pain [None]
  - Musculoskeletal discomfort [None]
  - Pain in extremity [None]
  - Middle insomnia [None]
  - Musculoskeletal disorder [None]
  - Asthenia [None]
  - Impaired driving ability [None]
  - Arthralgia [None]
